FAERS Safety Report 14540226 (Version 1)
Quarter: 2018Q1

REPORT INFORMATION
  Report Type: Spontaneous
  Country: US (occurrence: US)
  Receive Date: 20180216
  Receipt Date: 20180216
  Transmission Date: 20180509
  Serious: No
  Sender: FDA-Public Use
  Company Number: US-009507513-1801USA007291

PATIENT
  Age: 34 Year
  Sex: Female
  Weight: 78.46 kg

DRUGS (1)
  1. NEXPLANON [Suspect]
     Active Substance: ETONOGESTREL
     Dosage: IMPLANT/LEFT UPPER ARM
     Route: 059

REACTIONS (4)
  - Device breakage [Not Recovered/Not Resolved]
  - Uterine disorder [Unknown]
  - Device kink [Not Recovered/Not Resolved]
  - Medical device site discomfort [Unknown]

NARRATIVE: CASE EVENT DATE: 201710
